FAERS Safety Report 8119630-9 (Version None)
Quarter: 2012Q1

REPORT INFORMATION
  Report Type: 
  Country: None (occurrence: None)
  Receive Date: 20120207
  Receipt Date: 20120131
  Transmission Date: 20120608
  Serious: Yes (Other)
  Sender: FDA-Public Use
  Company Number: PHEH2011US02582

PATIENT
  Sex: Female
  Weight: 87.075 kg

DRUGS (17)
  1. VITAMIN D [Concomitant]
     Dosage: UNK UKN, UNK
  2. GILENYA [Suspect]
     Indication: MULTIPLE SCLEROSIS
     Dosage: 0.5 MG, QD
     Route: 048
     Dates: start: 20110624, end: 20110724
  3. FLOMAX [Concomitant]
     Dosage: UNK UKN, UNK
  4. ASPIRIN [Concomitant]
     Dosage: UNK UKN, UNK
  5. ENVAS [Concomitant]
     Dosage: UNK UKN, UNK
  6. FISH OIL [Concomitant]
     Dosage: UNK UKN, UNK
  7. CRANBERRY [Concomitant]
     Dosage: UNK UKN, UNK
  8. M.V.I. [Concomitant]
     Dosage: UNK UKN, UNK
  9. GILENYA [Suspect]
     Dosage: 0.5 MG, QD
     Route: 048
     Dates: start: 20110729
  10. OXYBUTYNIN [Concomitant]
     Dosage: UNK UKN, UNK
  11. HYDROCHLOROTHIAZIDE [Concomitant]
     Dosage: UNK UKN, UNK
  12. VERAPAMIL [Concomitant]
     Dosage: UNK UKN, UNK
  13. PROVIGIL [Concomitant]
     Dosage: UNK UKN, UNK
  14. PAXIL [Concomitant]
     Dosage: UNK UKN, UNK
  15. PRILOSEC [Concomitant]
     Dosage: UNK UKN, UNK
  16. RESTASIS [Concomitant]
     Dosage: UNK UKN, UNK
  17. ASCORBIC ACID [Concomitant]
     Dosage: UNK UKN, UNK

REACTIONS (9)
  - VOMITING [None]
  - DIZZINESS [None]
  - WHITE BLOOD CELL COUNT DECREASED [None]
  - RED BLOOD CELL COUNT DECREASED [None]
  - VERTIGO POSITIONAL [None]
  - HYPOKALAEMIA [None]
  - SOMNOLENCE [None]
  - BALANCE DISORDER [None]
  - NAUSEA [None]
